FAERS Safety Report 6858047-1 (Version None)
Quarter: 2010Q3

REPORT INFORMATION
  Report Type: 
  Country: None (occurrence: None)
  Receive Date: 20100719
  Receipt Date: 20080710
  Transmission Date: 20110219
  Serious: No
  Sender: FDA-Public Use
  Company Number: US-PFIZER INC-2008009912

PATIENT
  Sex: Female
  Weight: 47.63 kg

DRUGS (2)
  1. CHANTIX [Suspect]
     Indication: SMOKING CESSATION THERAPY
     Route: 048
     Dates: start: 20080201, end: 20080401
  2. VICODIN [Concomitant]
     Indication: NERVE INJURY

REACTIONS (2)
  - ABNORMAL DREAMS [None]
  - DEPRESSION [None]
